FAERS Safety Report 19257610 (Version 1)
Quarter: 2021Q2

REPORT INFORMATION
  Report Type: Spontaneous
  Country: US (occurrence: US)
  Receive Date: 20210513
  Receipt Date: 20210513
  Transmission Date: 20210717
  Serious: Yes (Other)
  Sender: FDA-Public Use
  Company Number: None

PATIENT
  Age: 70 Year
  Sex: Female
  Weight: 67.5 kg

DRUGS (7)
  1. TURMERIC CAPSULE [Concomitant]
  2. LIDOCAINE 23% TETRACAINE 7% OINTMENT [Suspect]
     Active Substance: LIDOCAINE HYDROCHLORIDE\TETRACAINE
     Indication: LOCAL ANAESTHESIA
     Dosage: ?          OTHER FREQUENCY:APPLIED ONCE;?
     Route: 061
     Dates: start: 20210510, end: 20210510
  3. VITAMIN D3 [Concomitant]
     Active Substance: CHOLECALCIFEROL
  4. INOSITOL [Concomitant]
     Active Substance: INOSITOL
  5. MINERAL COMPLEX [Concomitant]
  6. CELEBREX [Concomitant]
     Active Substance: CELECOXIB
  7. ELDERBERRY WITH ZINC AND C CAPSULE [Concomitant]

REACTIONS (11)
  - Eye swelling [None]
  - Visual impairment [None]
  - Pruritus [None]
  - Drug interaction [None]
  - Pain [None]
  - Impaired driving ability [None]
  - Hypersensitivity [None]
  - Swelling face [None]
  - Urticaria [None]
  - Erythema [None]
  - Dermatitis contact [None]

NARRATIVE: CASE EVENT DATE: 20210510
